FAERS Safety Report 9632348 (Version 2)
Quarter: 2014Q2

REPORT INFORMATION
  Report Type: Spontaneous
  Country: DK (occurrence: DK)
  Receive Date: 20131018
  Receipt Date: 20140528
  Transmission Date: 20141212
  Serious: Yes (Death, Life-Threatening, Other)
  Sender: FDA-Public Use
  Company Number: DK-ACTAVIS-2013-18912

PATIENT
  Age: 1 Month
  Sex: Female
  Weight: 9 kg

DRUGS (12)
  1. PARACETAMOL  (UNKNOWN) [Suspect]
     Indication: PRODUCT USED FOR UNKNOWN INDICATION
     Dosage: 5 MG, PRN 9MAXIMUM 4 TIMES DAILY)
     Route: 048
     Dates: start: 201302
  2. ISONIAZID [Interacting]
     Indication: DISSEMINATED TUBERCULOSIS
     Dosage: 135 MG, DAILY
     Route: 042
     Dates: start: 20130524
  3. AVELOX [Interacting]
     Indication: DISSEMINATED TUBERCULOSIS
     Dosage: 90 MG, DAILY
     Route: 042
     Dates: start: 20130524
  4. BACTRIM [Interacting]
     Indication: COMBINED IMMUNODEFICIENCY
     Dosage: 5 ML  1 TIME DAILY SATURDAYS AND SUNDAYS, STRENGTH: 40 +8 MG / ML
     Route: 048
     Dates: start: 201302
  5. BIKLIN [Interacting]
     Indication: DISSEMINATED TUBERCULOSIS
     Dosage: 175 MG, DAILY
     Route: 042
     Dates: start: 20130524
  6. DIFLUCAN [Interacting]
     Indication: COMBINED IMMUNODEFICIENCY
     Dosage: 2 ML, DAILY
     Route: 048
     Dates: start: 201302
  7. MYAMBUTOL [Interacting]
     Indication: DISSEMINATED TUBERCULOSIS
     Dosage: 200 MG, DAILY
     Route: 048
     Dates: start: 20130524
  8. PROLEUKIN /00921302/ [Interacting]
     Indication: DISSEMINATED TUBERCULOSIS
     Dosage: STEPPED FROM 0.01 IU PER DAY TO 0.27 IU
     Route: 058
     Dates: start: 20130822
  9. VOLTAREN                           /00372301/ [Interacting]
     Indication: PAIN
     Dosage: 12.5 MG, PRN (MAXIMUM 3 TIMES DAILY)
     Route: 054
     Dates: start: 201305
  10. ZOVIR [Interacting]
     Indication: COMBINED IMMUNODEFICIENCY
     Dosage: 2.5 ML, BID; CONCENTRATION: 80 MG/ML
     Route: 048
     Dates: start: 201302
  11. EREMFAT /00146901/ [Interacting]
     Indication: DISSEMINATED TUBERCULOSIS
     Dosage: 175 MG, DAILY; EREMFAT I.V. ^RIEMSER^
     Route: 042
     Dates: start: 20130524
  12. PRIVIGEN                           /00025201/ [Concomitant]
     Indication: COMBINED IMMUNODEFICIENCY
     Dosage: UNK
     Route: 065
     Dates: start: 201302

REACTIONS (9)
  - Cardiac arrest [Fatal]
  - Respiratory arrest [Fatal]
  - Oedema peripheral [Unknown]
  - Dyskinesia [Unknown]
  - Abdominal distension [Unknown]
  - Vomiting [Unknown]
  - Drug interaction [Unknown]
  - Sudden death [None]
  - General physical health deterioration [None]
